FAERS Safety Report 23587143 (Version 1)
Quarter: 2024Q1

REPORT INFORMATION
  Report Type: Spontaneous
  Country: US (occurrence: US)
  Receive Date: 20240301
  Receipt Date: 20240301
  Transmission Date: 20240410
  Serious: Yes (Other)
  Sender: FDA-Public Use
  Company Number: US-AMGEN-USASP2024037044

PATIENT
  Age: 57 Year
  Sex: Female

DRUGS (8)
  1. TRASTUZUMAB DERUXTECAN [Suspect]
     Active Substance: TRASTUZUMAB DERUXTECAN
     Indication: Hormone receptor negative HER2 positive breast cancer
     Dosage: UNK
     Route: 065
     Dates: start: 2021
  2. TRASTUZUMAB DERUXTECAN [Suspect]
     Active Substance: TRASTUZUMAB DERUXTECAN
     Indication: Breast cancer metastatic
  3. XGEVA [Suspect]
     Active Substance: DENOSUMAB
     Indication: Hormone receptor negative HER2 positive breast cancer
     Dosage: UNK
     Route: 065
     Dates: start: 2021
  4. XGEVA [Suspect]
     Active Substance: DENOSUMAB
     Indication: Breast cancer metastatic
  5. CAPECITABINE [Suspect]
     Active Substance: CAPECITABINE
     Indication: Hormone receptor negative HER2 positive breast cancer
     Dosage: UNK
     Route: 065
     Dates: start: 2021
  6. CAPECITABINE [Suspect]
     Active Substance: CAPECITABINE
     Indication: Breast cancer metastatic
  7. TUCATINIB [Suspect]
     Active Substance: TUCATINIB
     Indication: Hormone receptor negative HER2 positive breast cancer
     Dosage: UNK
     Route: 065
     Dates: start: 2021
  8. TUCATINIB [Suspect]
     Active Substance: TUCATINIB
     Indication: Breast cancer metastatic

REACTIONS (3)
  - Papillary thyroid cancer [Unknown]
  - Herpes zoster [Unknown]
  - Weight decreased [Unknown]
